FAERS Safety Report 14532001 (Version 1)
Quarter: 2018Q1

REPORT INFORMATION
  Report Type: Spontaneous
  Country: US (occurrence: US)
  Receive Date: 20180214
  Receipt Date: 20180214
  Transmission Date: 20180509
  Serious: No
  Sender: FDA-Public Use
  Company Number: US-ALLERGAN-1713103US

PATIENT
  Age: 64 Year
  Sex: Female

DRUGS (1)
  1. GELNIQUE [Suspect]
     Active Substance: OXYBUTYNIN
     Indication: HYPERTONIC BLADDER
     Dosage: UNK UNK, SINGLE
     Route: 061
     Dates: start: 20170330, end: 20170330

REACTIONS (4)
  - Pruritus [Not Recovered/Not Resolved]
  - Skin induration [Not Recovered/Not Resolved]
  - Erythema [Recovering/Resolving]
  - Skin warm [Not Recovered/Not Resolved]

NARRATIVE: CASE EVENT DATE: 20170330
